FAERS Safety Report 17755219 (Version 1)
Quarter: 2020Q2

REPORT INFORMATION
  Report Type: Spontaneous
  Country: US (occurrence: US)
  Receive Date: 20200507
  Receipt Date: 20200507
  Transmission Date: 20200714
  Serious: Yes (Death, Hospitalization)
  Sender: FDA-Public Use
  Company Number: US-SUN PHARMACEUTICAL INDUSTRIES LTD-2020R1-245704

PATIENT
  Age: 61 Year
  Sex: Female

DRUGS (5)
  1. COTRIMOXAZOLE [Suspect]
     Active Substance: SULFAMETHOXAZOLE\TRIMETHOPRIM
     Indication: PROPHYLAXIS
     Dosage: 1 TABLET, 3DOSE/WEEK
     Route: 065
  2. MYCOPHENOLATE [Suspect]
     Active Substance: MYCOPHENOLIC ACID
     Indication: IMMUNOSUPPRESSANT DRUG THERAPY
     Dosage: UNK
     Route: 065
  3. PREDNISONE. [Suspect]
     Active Substance: PREDNISONE
     Indication: IMMUNOSUPPRESSANT DRUG THERAPY
     Dosage: UNK
     Route: 065
  4. ACYCLOVIR. [Concomitant]
     Active Substance: ACYCLOVIR
     Indication: PROPHYLAXIS
     Dosage: 400 MILLIGRAM, BID
     Route: 065
  5. TACROLIMUS. [Suspect]
     Active Substance: TACROLIMUS
     Indication: IMMUNOSUPPRESSANT DRUG THERAPY
     Dosage: UNK
     Route: 065

REACTIONS (13)
  - Pleural effusion [Fatal]
  - Toxoplasmosis [Fatal]
  - Hypotension [Fatal]
  - Enterococcal infection [Unknown]
  - Sepsis syndrome [Fatal]
  - Abdominal wall infection [Unknown]
  - Clostridium difficile colitis [Unknown]
  - Encephalitis cytomegalovirus [Fatal]
  - Respiratory failure [Unknown]
  - Abdominal abscess [Unknown]
  - Confusional state [Fatal]
  - Acute kidney injury [Unknown]
  - Klebsiella test positive [Unknown]
